FAERS Safety Report 5145450-3 (Version None)
Quarter: 2006Q4

REPORT INFORMATION
  Report Type: 
  Country: None (occurrence: None)
  Receive Date: 20061101
  Receipt Date: 20061027
  Transmission Date: 20070319
  Serious: Yes (Hospitalization, Other)
  Sender: FDA-Public Use
  Company Number: FRWYE352227OCT06

PATIENT
  Age: 58 Year
  Sex: Male

DRUGS (1)
  1. RAPAMUNE [Suspect]
     Indication: PROPHYLAXIS AGAINST TRANSPLANT REJECTION
     Dosage: 6 MG TOTAL DAILY ORAL
     Route: 048
     Dates: end: 20060727

REACTIONS (7)
  - BRONCHOALVEOLAR LAVAGE ABNORMAL [None]
  - HAEMOGLOBIN DECREASED [None]
  - HAEMOPTYSIS [None]
  - HUMAN HERPESVIRUS 6 INFECTION [None]
  - IMMUNOSUPPRESSANT DRUG LEVEL INCREASED [None]
  - INTERSTITIAL LUNG DISEASE [None]
  - PLATELET COUNT DECREASED [None]
